FAERS Safety Report 10949587 (Version 1)
Quarter: 2015Q1

REPORT INFORMATION
  Report Type: Spontaneous
  Country: US (occurrence: None)
  Receive Date: 20150323
  Receipt Date: 20150323
  Transmission Date: 20150721
  Serious: No
  Sender: FDA-Public Use
  Company Number: None

PATIENT
  Age: 67 Year
  Sex: Female
  Weight: 61.24 kg

DRUGS (21)
  1. SERTRALINE [Concomitant]
     Active Substance: SERTRALINE HYDROCHLORIDE
  2. METHYLPREDNISOLONE 4MG DOSPAK 21^S CADISTA [Suspect]
     Active Substance: METHYLPREDNISOLONE
     Indication: UPPER RESPIRATORY TRACT CONGESTION
     Dosage: 21 OVER 6 DAYS, 6, 5, 4, 3, 2, 1, TAKEN BY MOUTH
     Route: 048
     Dates: start: 20150309, end: 20150314
  3. METHYLPREDNISOLONE 4MG DOSPAK 21^S CADISTA [Suspect]
     Active Substance: METHYLPREDNISOLONE
     Indication: PYREXIA
     Dosage: 21 OVER 6 DAYS, 6, 5, 4, 3, 2, 1, TAKEN BY MOUTH
     Route: 048
     Dates: start: 20150309, end: 20150314
  4. ZOLPIDEM [Concomitant]
     Active Substance: ZOLPIDEM\ZOLPIDEM TARTRATE
  5. C-PAP MACHINE [Concomitant]
     Active Substance: DEVICE
  6. ASPIRIN. [Concomitant]
     Active Substance: ASPIRIN
  7. MULTI-VITAMIN [Concomitant]
     Active Substance: .ALPHA.-TOCOPHEROL ACETATE, DL-\ASCORBIC ACID\CYANOCOBALAMIN\FLUORIDE ION\FOLIC ACID\NIACIN\PYRIDOXINE\RIBOFLAVIN\THIAMINE\VITAMIN A\VITAMIN D
  8. L-THYROXINE [Concomitant]
     Active Substance: LEVOTHYROXINE
  9. VITAMIN D [Concomitant]
     Active Substance: CHOLECALCIFEROL
  10. DOXEPIN [Concomitant]
     Active Substance: DOXEPIN
  11. MUSINEX DM [Concomitant]
     Active Substance: DEXTROMETHORPHAN HYDROBROMIDE\GUAIFENESIN
  12. METHYLPREDNISOLONE 4MG DOSPAK 21^S CADISTA [Suspect]
     Active Substance: METHYLPREDNISOLONE
     Indication: PULMONARY CONGESTION
     Dosage: 21 OVER 6 DAYS, 6, 5, 4, 3, 2, 1, TAKEN BY MOUTH
     Route: 048
     Dates: start: 20150309, end: 20150314
  13. GUAIATUSSIN AC [Concomitant]
     Active Substance: CODEINE PHOSPHATE\GUAIFENESIN
  14. LIVALO [Concomitant]
     Active Substance: PITAVASTATIN CALCIUM
  15. CALCIUM [Concomitant]
     Active Substance: CALCIUM
  16. EVISTA [Concomitant]
     Active Substance: RALOXIFENE HYDROCHLORIDE
  17. OMEPRAZOLE. [Concomitant]
     Active Substance: OMEPRAZOLE
  18. ADVILL OR TYENOL [Concomitant]
  19. PROBIOTIC [Concomitant]
     Active Substance: PROBIOTICS NOS
  20. SUDAFED [Concomitant]
     Active Substance: PSEUDOEPHEDRINE HYDROCHLORIDE
  21. CHORPHENIRAMINE MALEATE [Concomitant]

REACTIONS (1)
  - Drug hypersensitivity [None]

NARRATIVE: CASE EVENT DATE: 20150314
